FAERS Safety Report 6450757-3 (Version None)
Quarter: 2009Q4

REPORT INFORMATION
  Report Type: 
  Country: None (occurrence: None)
  Receive Date: 20091123
  Receipt Date: 20091111
  Transmission Date: 20100525
  Serious: Yes (Hospitalization)
  Sender: FDA-Public Use
  Company Number: IT-ELI_LILLY_AND_COMPANY-IT200909000758

PATIENT
  Sex: Male

DRUGS (5)
  1. ALIMTA [Suspect]
     Indication: ADENOCARCINOMA
     Dosage: 1000 MG, UNKNOWN
     Route: 042
     Dates: start: 20090807, end: 20090807
  2. SOLDESAM [Concomitant]
     Dosage: UNK, UNKNOWN
     Route: 065
  3. ZOFRAN [Concomitant]
     Dosage: UNK, UNKNOWN
     Route: 065
  4. DOBETIN [Concomitant]
     Dosage: UNK, UNKNOWN
     Route: 065
  5. FOLIC ACID [Concomitant]
     Dosage: UNK, UNKNOWN
     Route: 065

REACTIONS (5)
  - FEBRILE NEUTROPENIA [None]
  - FUNGAL INFECTION [None]
  - HAEMATURIA [None]
  - ORAL FUNGAL INFECTION [None]
  - RECTAL HAEMORRHAGE [None]
